FAERS Safety Report 6996615-7 (Version None)
Quarter: 2010Q3

REPORT INFORMATION
  Report Type: 
  Country: None (occurrence: None)
  Receive Date: 20100918
  Receipt Date: 20090512
  Transmission Date: 20110219
  Serious: No
  Sender: FDA-Public Use
  Company Number: US-WYE-H09323509

PATIENT
  Sex: Female

DRUGS (3)
  1. EFFEXOR XR [Suspect]
     Indication: BIPOLAR DISORDER
     Route: 048
     Dates: start: 20050101, end: 20090101
  2. EFFEXOR XR [Suspect]
     Dosage: ^TAPERED OFF OVER A 2 WEEK PERIOD BY DECRASING THE DOSE^
     Route: 048
     Dates: start: 20090101, end: 20090301
  3. SYNTHROID [Concomitant]

REACTIONS (2)
  - DISTURBANCE IN ATTENTION [None]
  - DRUG WITHDRAWAL SYNDROME [None]
